FAERS Safety Report 23261995 (Version 1)
Quarter: 2023Q4

REPORT INFORMATION
  Report Type: Spontaneous
  Country: PL (occurrence: PL)
  Receive Date: 20231205
  Receipt Date: 20231205
  Transmission Date: 20240109
  Serious: Yes (Other)
  Sender: FDA-Public Use
  Company Number: PL-BAYER-2023A173870

PATIENT
  Age: 35 Year
  Sex: Male

DRUGS (1)
  1. INTERFERON BETA-1B [Suspect]
     Active Substance: INTERFERON BETA-1B
     Indication: Relapsing-remitting multiple sclerosis
     Dosage: UNK
     Route: 058
     Dates: start: 201406, end: 201907

REACTIONS (5)
  - Multiple sclerosis [None]
  - Demyelination [None]
  - Hypoaesthesia [None]
  - Influenza like illness [Recovered/Resolved]
  - Therapeutic product effect incomplete [None]
